FAERS Safety Report 18270571 (Version 2)
Quarter: 2020Q3

REPORT INFORMATION
  Report Type: Report from Study
  Country: US (occurrence: US)
  Receive Date: 20200915
  Receipt Date: 20200925
  Transmission Date: 20201103
  Serious: Yes (Hospitalization)
  Sender: FDA-Public Use
  Company Number: US-JNJFOC-A-US2019-194242

PATIENT
  Age: 51 Year
  Sex: Female
  Weight: 126.21 kg

DRUGS (7)
  1. UPTRAVI [Suspect]
     Active Substance: SELEXIPAG
     Dosage: 1000 MCG, BID
     Route: 048
     Dates: start: 20191029
  2. TREPROSTINIL. [Concomitant]
     Active Substance: TREPROSTINIL
  3. OPSUMIT [Suspect]
     Active Substance: MACITENTAN
     Indication: PULMONARY ARTERIAL HYPERTENSION
     Route: 048
  4. ADEMPAS [Concomitant]
     Active Substance: RIOCIGUAT
  5. SILDENAFIL CITRATE. [Concomitant]
     Active Substance: SILDENAFIL CITRATE
  6. METOLAZONE. [Concomitant]
     Active Substance: METOLAZONE
  7. UPTRAVI [Suspect]
     Active Substance: SELEXIPAG
     Indication: PULMONARY ARTERIAL HYPERTENSION
     Dosage: 1600 MCG, BID
     Route: 048
     Dates: end: 20200807

REACTIONS (18)
  - Therapy change [Unknown]
  - Headache [Unknown]
  - Peripheral swelling [Not Recovered/Not Resolved]
  - Abdominal pain [Unknown]
  - Pain in extremity [Unknown]
  - Dizziness [Unknown]
  - Blood creatinine increased [Unknown]
  - Condition aggravated [Not Recovered/Not Resolved]
  - Fluid retention [Unknown]
  - Neurosurgery [Unknown]
  - Diarrhoea [Unknown]
  - Oedema peripheral [Not Recovered/Not Resolved]
  - Dyspepsia [Unknown]
  - Localised oedema [Not Recovered/Not Resolved]
  - Arthralgia [Unknown]
  - Hospitalisation [Unknown]
  - Oxygen saturation decreased [Not Recovered/Not Resolved]
  - Periorbital swelling [Not Recovered/Not Resolved]

NARRATIVE: CASE EVENT DATE: 20200909
